FAERS Safety Report 4650654-X (Version None)
Quarter: 2005Q2

REPORT INFORMATION
  Report Type: 
  Country: None (occurrence: None)
  Receive Date: 20050428
  Receipt Date: 20050428
  Transmission Date: 20051028
  Serious: Yes (Other)
  Sender: FDA-Public Use
  Company Number: None

PATIENT
  Age: 33 Year
  Sex: Female
  Weight: 87.5442 kg

DRUGS (5)
  1. BUPROPION HCL [Suspect]
     Indication: DEPRESSION
     Dosage: XL 150 MG BID
     Dates: start: 20040101
  2. LEXAPRO [Concomitant]
  3. ZOLOFT [Concomitant]
  4. CELEXA [Concomitant]
  5. REMERON [Concomitant]

REACTIONS (5)
  - ANXIETY [None]
  - CRYING [None]
  - DRUG EFFECT DECREASED [None]
  - FATIGUE [None]
  - THERAPEUTIC RESPONSE UNEXPECTED WITH DRUG SUBSTITUTION [None]
